FAERS Safety Report 6652166-0 (Version None)
Quarter: 2010Q1

REPORT INFORMATION
  Report Type: 
  Country: None (occurrence: None)
  Receive Date: 20100325
  Receipt Date: 20100317
  Transmission Date: 20100710
  Serious: Yes (Other)
  Sender: FDA-Public Use
  Company Number: US-AMGEN-QUU397781

PATIENT
  Sex: Male

DRUGS (13)
  1. ARANESP [Suspect]
     Indication: DIALYSIS
  2. CARVEDILOL [Concomitant]
  3. VITAMIN B-12 [Concomitant]
  4. HEPARIN [Concomitant]
  5. LORTAB [Concomitant]
  6. VENOFER [Concomitant]
  7. LISINOPRIL [Concomitant]
  8. CELLCEPT [Concomitant]
  9. PRILOSEC [Concomitant]
  10. PREDNISONE TAB [Concomitant]
  11. BACTRIM [Concomitant]
  12. VALTREX [Concomitant]
  13. AMBIEN [Concomitant]

REACTIONS (2)
  - ANAEMIA [None]
  - RETICULOCYTE COUNT DECREASED [None]
